FAERS Safety Report 8491401-3 (Version None)
Quarter: 2012Q3

REPORT INFORMATION
  Report Type: 
  Country: None (occurrence: None)
  Receive Date: 20120706
  Receipt Date: 20120627
  Transmission Date: 20120928
  Serious: No
  Sender: FDA-Public Use
  Company Number: US-BAYER-2012-064798

PATIENT
  Sex: Female

DRUGS (1)
  1. ALEVE (CAPLET) [Suspect]
     Indication: PROCEDURAL PAIN
     Dosage: UNK
     Route: 048

REACTIONS (3)
  - SOMNOLENCE [None]
  - THINKING ABNORMAL [None]
  - DISTURBANCE IN ATTENTION [None]
